FAERS Safety Report 24938043 (Version 2)
Quarter: 2025Q1

REPORT INFORMATION
  Report Type: Spontaneous
  Country: US (occurrence: US)
  Receive Date: 20250206
  Receipt Date: 20250219
  Transmission Date: 20250409
  Serious: Yes (Other)
  Sender: TEVA
  Company Number: US-ABBVIE-5730769

PATIENT
  Age: 75 Year
  Sex: Male

DRUGS (8)
  1. ACITRETIN [Suspect]
     Active Substance: ACITRETIN
     Indication: Rash
     Route: 048
  2. ACITRETIN [Suspect]
     Active Substance: ACITRETIN
     Indication: Rash
     Route: 048
  3. ACITRETIN [Suspect]
     Active Substance: ACITRETIN
     Indication: Rash
     Route: 048
  4. ACITRETIN [Suspect]
     Active Substance: ACITRETIN
     Indication: Rash
     Route: 048
  5. ERLOTINIB [Suspect]
     Active Substance: ERLOTINIB
     Indication: Rash
     Route: 065
  6. TRIAMCINOLONE [Suspect]
     Active Substance: TRIAMCINOLONE
     Indication: Rash
     Route: 026
  7. CEMIPLIMAB [Suspect]
     Active Substance: CEMIPLIMAB
     Indication: Rash
     Route: 065
  8. FLUOROURACIL [Suspect]
     Active Substance: FLUOROURACIL
     Indication: Keratoacanthoma
     Route: 061

REACTIONS (5)
  - Hepatic enzyme increased [Unknown]
  - Drug ineffective [Unknown]
  - Drug eruption [Recovered/Resolved]
  - Pain [Unknown]
  - Dermatitis acneiform [Recovered/Resolved]
